FAERS Safety Report 25495047 (Version 1)
Quarter: 2025Q2

REPORT INFORMATION
  Report Type: Spontaneous
  Country: ES (occurrence: ES)
  Receive Date: 20250630
  Receipt Date: 20250630
  Transmission Date: 20250716
  Serious: Yes (Other)
  Sender: PFIZER
  Company Number: ES-PFIZER INC-PV202500075329

PATIENT
  Age: 37 Year
  Sex: Female

DRUGS (3)
  1. METHYLPREDNISOLONE SODIUM SUCCINATE [Suspect]
     Active Substance: METHYLPREDNISOLONE SODIUM SUCCINATE
     Indication: Liver transplant
     Route: 042
     Dates: start: 202301
  2. TACROLIMUS [Suspect]
     Active Substance: TACROLIMUS
     Indication: Liver transplant
     Dosage: 0.1 MG/KG/DAY (12 MG/DAY) (PROLONGED-RELEASE WITH SUBSEQUENT ADJUSTMENTS ACCORDING TO BLOOD TROUGH C
     Dates: start: 202301
  3. MYCOPHENOLATE MOFETIL [Suspect]
     Active Substance: MYCOPHENOLATE MOFETIL
     Indication: Liver transplant
     Dosage: 1000 MG/12 HOURS
     Route: 042
     Dates: start: 202301

REACTIONS (1)
  - Liver transplant rejection [Unknown]

NARRATIVE: CASE EVENT DATE: 20230101
